FAERS Safety Report 7251540-1 (Version None)
Quarter: 2011Q1

REPORT INFORMATION
  Report Type: 
  Country: None (occurrence: None)
  Receive Date: 20110128
  Receipt Date: 20110114
  Transmission Date: 20110831
  Serious: Yes (Hospitalization)
  Sender: FDA-Public Use
  Company Number: US-ELI_LILLY_AND_COMPANY-US201012003338

PATIENT
  Age: 85 Year
  Sex: Female
  Weight: 73.469 kg

DRUGS (7)
  1. NORVASC [Concomitant]
  2. DIOVAN [Concomitant]
  3. XANAX [Concomitant]
  4. ASPIRIN [Concomitant]
  5. ATENOLOL [Concomitant]
  6. PLAVIX [Concomitant]
  7. FORTEO [Suspect]
     Indication: OSTEOPOROSIS
     Dosage: 20 UG, DAILY (1/D)
     Route: 058
     Dates: start: 20100728

REACTIONS (2)
  - DIVERTICULITIS [None]
  - URINARY TRACT INFECTION [None]
